FAERS Safety Report 7972806-3 (Version None)
Quarter: 2011Q4

REPORT INFORMATION
  Report Type: 
  Country: None (occurrence: None)
  Receive Date: 20111213
  Receipt Date: 20111208
  Transmission Date: 20120403
  Serious: No
  Sender: FDA-Public Use
  Company Number: US-PFIZER INC-2011300303

PATIENT

DRUGS (2)
  1. DIFLUCAN [Suspect]
     Indication: VIRAL INFECTION
     Dosage: 400 MG, 1X/DAY
     Route: 048
     Dates: start: 20101101, end: 20110401
  2. DIFLUCAN [Suspect]
     Dosage: 400 MG, 1X/DAY
     Route: 048
     Dates: start: 20110801

REACTIONS (2)
  - VASCULITIS [None]
  - INFLUENZA [None]
